FAERS Safety Report 6190094-8 (Version None)
Quarter: 2009Q2

REPORT INFORMATION
  Report Type: 
  Country: None (occurrence: None)
  Receive Date: 20090514
  Receipt Date: 20090511
  Transmission Date: 20091009
  Serious: Yes (Death)
  Sender: FDA-Public Use
  Company Number: PHHY2009CA18048

PATIENT
  Age: 96 Year
  Sex: Male

DRUGS (1)
  1. EXELON [Suspect]
     Indication: DEMENTIA ALZHEIMER'S TYPE
     Dosage: 6 MG, BID (MAX DOSE)
     Route: 048

REACTIONS (5)
  - CARDIAC FAILURE [None]
  - DRUG INEFFECTIVE [None]
  - INFLUENZA [None]
  - OXYGEN SUPPLEMENTATION [None]
  - WRONG TECHNIQUE IN DRUG USAGE PROCESS [None]
